FAERS Safety Report 24220027 (Version 1)
Quarter: 2024Q3

REPORT INFORMATION
  Report Type: Spontaneous
  Country: CA (occurrence: CA)
  Receive Date: 20240817
  Receipt Date: 20240817
  Transmission Date: 20241016
  Serious: Yes (Other)
  Sender: TEVA
  Company Number: CA-TEVA-VS-3233217

PATIENT
  Age: 36 Year
  Sex: Female
  Weight: 105 kg

DRUGS (1)
  1. PREDNISONE [Suspect]
     Active Substance: PREDNISONE
     Indication: Product used for unknown indication
     Dosage: FOR 2 WEEKS AND THEN TAMPER DOWN
     Route: 048
     Dates: start: 202407

REACTIONS (4)
  - Depression [Unknown]
  - Insomnia [Unknown]
  - Blood iron decreased [Unknown]
  - Anxiety [Unknown]

NARRATIVE: CASE EVENT DATE: 20240101
